FAERS Safety Report 25711998 (Version 1)
Quarter: 2025Q3

REPORT INFORMATION
  Report Type: Spontaneous
  Country: EU (occurrence: EU)
  Receive Date: 20250821
  Receipt Date: 20250821
  Transmission Date: 20251020
  Serious: Yes (Other)
  Sender: PFIZER
  Company Number: EU-PFIZER INC-202500159366

PATIENT
  Age: 64 Year
  Sex: Male

DRUGS (2)
  1. VIBRAMYCIN [Suspect]
     Active Substance: DOXYCYCLINE
     Indication: Dermatitis allergic
     Dates: start: 2008
  2. VIBRAMYCIN [Suspect]
     Active Substance: DOXYCYCLINE
     Indication: Skin disorder

REACTIONS (2)
  - Barrett^s oesophagus [Unknown]
  - Off label use [Unknown]

NARRATIVE: CASE EVENT DATE: 20080101
